FAERS Safety Report 8019792-8 (Version None)
Quarter: 2012Q1

REPORT INFORMATION
  Report Type: 
  Country: None (occurrence: None)
  Receive Date: 20120103
  Receipt Date: 20111229
  Transmission Date: 20120608
  Serious: Yes (Death, Hospitalization)
  Sender: FDA-Public Use
  Company Number: US-AMGEN-USASP2011008532

PATIENT
  Age: 79 Year
  Sex: Female
  Weight: 40.816 kg

DRUGS (1)
  1. PROLIA [Suspect]
     Indication: OSTEOPOROSIS POSTMENOPAUSAL
     Dosage: 60 MG, Q6MO
     Dates: start: 20100827, end: 20100827

REACTIONS (3)
  - SEPSIS [None]
  - PNEUMONIA [None]
  - PNEUMOCOCCAL BACTERAEMIA [None]
